FAERS Safety Report 21975322 (Version 1)
Quarter: 2023Q1

REPORT INFORMATION
  Report Type: Spontaneous
  Country: US (occurrence: US)
  Receive Date: 20230210
  Receipt Date: 20230210
  Transmission Date: 20230417
  Serious: No
  Sender: FDA-Public Use
  Company Number: US-TOLMAR, INC.-23US038684

PATIENT
  Sex: Male

DRUGS (1)
  1. CALCIPOTRIENE [Suspect]
     Active Substance: CALCIPOTRIENE
     Indication: Product used for unknown indication
     Dosage: UNK

REACTIONS (3)
  - Erythema [Unknown]
  - Pruritus [Unknown]
  - Expired product administered [Unknown]
